FAERS Safety Report 12191655 (Version 1)
Quarter: 2016Q1

REPORT INFORMATION
  Report Type: Spontaneous
  Country: GB (occurrence: GB)
  Receive Date: 20160318
  Receipt Date: 20160318
  Transmission Date: 20160526
  Serious: Yes (Death, Other)
  Sender: FDA-Public Use
  Company Number: GB-FRESENIUS KABI-FK201601378

PATIENT
  Age: 56 Year
  Sex: Male

DRUGS (5)
  1. ALIMTA [Suspect]
     Active Substance: PEMETREXED DISODIUM
     Indication: PRODUCT USED FOR UNKNOWN INDICATION
     Dates: start: 20150209
  2. CARBOPLATIN (MANUFACTURER UNKNOWN) [Suspect]
     Active Substance: CARBOPLATIN
     Indication: PRODUCT USED FOR UNKNOWN INDICATION
     Route: 065
     Dates: start: 20150209
  3. XALKORI [Suspect]
     Active Substance: CRIZOTINIB
     Indication: PRODUCT USED FOR UNKNOWN INDICATION
     Dates: start: 201503
  4. ALIMTA [Suspect]
     Active Substance: PEMETREXED DISODIUM
     Dates: start: 20150302
  5. CARBOPLATIN (MANUFACTURER UNKNOWN) [Suspect]
     Active Substance: CARBOPLATIN
     Dates: start: 20150302

REACTIONS (3)
  - Bronchopulmonary aspergillosis [Fatal]
  - Cerebral aspergillosis [Fatal]
  - Lymphangitis [Unknown]
